FAERS Safety Report 9782610 (Version 1)
Quarter: 2013Q4

REPORT INFORMATION
  Report Type: Spontaneous
  Country: IN (occurrence: None)
  Receive Date: 20131220
  Receipt Date: 20131220
  Transmission Date: 20140711
  Serious: Yes (Other)
  Sender: FDA-Public Use
  Company Number: CO-OR-IN-2013-232

PATIENT
  Sex: 0

DRUGS (3)
  1. PREDNISOLONE (PREDNISOLONE) [Suspect]
     Indication: UVEITIS
     Dosage: REDUCED PER WEEK AND STOPPED BY THE END OF 8 WEEKS
  2. MOXIFLOXACIN [Concomitant]
  3. BETAMETHASONE [Concomitant]

REACTIONS (1)
  - Cystoid macular oedema [None]
